FAERS Safety Report 5746918-9 (Version None)
Quarter: 2008Q2

REPORT INFORMATION
  Report Type: 
  Country: None (occurrence: None)
  Receive Date: 20080520
  Receipt Date: 20080520
  Transmission Date: 20081010
  Serious: Yes (Life-Threatening)
  Sender: FDA-Public Use
  Company Number: None

PATIENT
  Age: 57 Year
  Sex: Male
  Weight: 83.9154 kg

DRUGS (1)
  1. DIGOXIN [Suspect]
     Indication: CARDIAC FAILURE
     Dosage: ONE DAILY
     Dates: start: 20070101, end: 20080501

REACTIONS (12)
  - ABDOMINAL PAIN UPPER [None]
  - CARDIAC DISORDER [None]
  - DIARRHOEA [None]
  - DIZZINESS [None]
  - FEELING ABNORMAL [None]
  - GENERAL PHYSICAL HEALTH DETERIORATION [None]
  - HALLUCINATION, VISUAL [None]
  - HYPOTENSION [None]
  - ORAL INTAKE REDUCED [None]
  - TINNITUS [None]
  - URINE OUTPUT DECREASED [None]
  - WEIGHT DECREASED [None]
